FAERS Safety Report 18730767 (Version 4)
Quarter: 2021Q1

REPORT INFORMATION
  Report Type: Spontaneous
  Country: JP (occurrence: JP)
  Receive Date: 20210112
  Receipt Date: 20210215
  Transmission Date: 20210419
  Serious: Yes (Hospitalization, Other)
  Sender: FDA-Public Use
  Company Number: JP-DSJP-DSJ-2021-100675

PATIENT
  Age: 70 Year
  Sex: Male
  Weight: 42 kg

DRUGS (14)
  1. ZINC. [Concomitant]
     Active Substance: ZINC
     Indication: ZINC DEFICIENCY
  2. CYMBALTA [Concomitant]
     Active Substance: DULOXETINE HYDROCHLORIDE
     Indication: NEUROPATHY PERIPHERAL
     Dosage: 20 MG, QD
     Route: 048
     Dates: start: 20201226, end: 20201231
  3. CELECOXIB. [Concomitant]
     Active Substance: CELECOXIB
     Indication: BONE PAIN
     Dosage: 200 MG, BID
     Route: 048
     Dates: start: 20200924, end: 20201231
  4. BELSOMRA [Concomitant]
     Active Substance: SUVOREXANT
     Indication: INSOMNIA
     Dosage: 20 MG, QD
     Route: 048
     Dates: start: 20200901, end: 20201231
  5. RINDERON V [Concomitant]
     Active Substance: BETAMETHASONE VALERATE
     Indication: METASTASES TO CENTRAL NERVOUS SYSTEM
     Dosage: 4 MG, QD
     Route: 042
     Dates: start: 20210101
  6. ENHERTU [Suspect]
     Active Substance: FAM-TRASTUZUMAB DERUXTECAN-NXKI
     Indication: HER2 POSITIVE GASTRIC CANCER
     Dosage: 6.4 MG/KG, ONCE EVERY 3 WK
     Route: 041
     Dates: start: 20201223, end: 20201223
  7. DECADRON [Concomitant]
     Active Substance: DEXAMETHASONE
     Indication: METASTASES TO CENTRAL NERVOUS SYSTEM
     Dosage: 4 MG, QD
     Route: 048
     Dates: start: 20201109, end: 20201231
  8. E KEPPRA [Concomitant]
     Active Substance: LEVETIRACETAM
     Indication: EPILEPSY
     Dosage: 500 MG, BID
     Route: 048
     Dates: start: 20201109, end: 20201231
  9. RINDERON V [Concomitant]
     Active Substance: BETAMETHASONE VALERATE
     Indication: BRAIN OEDEMA
  10. LANSOPRAZOLE. [Concomitant]
     Active Substance: LANSOPRAZOLE
     Indication: GASTRIC ULCER
     Dosage: 30 MG, QD
     Route: 048
     Dates: start: 20200509, end: 20201231
  11. DECADRON [Concomitant]
     Active Substance: DEXAMETHASONE
     Indication: BRAIN OEDEMA
  12. ZINC. [Concomitant]
     Active Substance: ZINC
     Indication: TASTE DISORDER
     Dosage: 50 MG, BID
     Route: 048
     Dates: start: 20201213, end: 20201231
  13. TAKEPRON [Concomitant]
     Active Substance: LANSOPRAZOLE
     Indication: GASTRIC ULCER
     Dosage: 30 MG, BID
     Route: 042
     Dates: start: 20210101
  14. ELNEOPA NF NO.1 [Concomitant]
     Indication: PARENTERAL NUTRITION
     Dosage: 1500 ML, QD
     Route: 042
     Dates: start: 20201218, end: 20201227

REACTIONS (2)
  - Febrile neutropenia [Recovered/Resolved]
  - Platelet count decreased [Recovered/Resolved]

NARRATIVE: CASE EVENT DATE: 20210101
